FAERS Safety Report 5629509-X (Version None)
Quarter: 2008Q1

REPORT INFORMATION
  Report Type: 
  Country: None (occurrence: None)
  Receive Date: 20080218
  Receipt Date: 20080207
  Transmission Date: 20080703
  Serious: Yes (Other)
  Sender: FDA-Public Use
  Company Number: US-BAYER-200813559NA

PATIENT
  Sex: Female

DRUGS (1)
  1. BETAPACE [Suspect]

REACTIONS (2)
  - ARRHYTHMIA [None]
  - EJECTION FRACTION DECREASED [None]
